FAERS Safety Report 12009495 (Version 1)
Quarter: 2016Q1

REPORT INFORMATION
  Report Type: Spontaneous
  Country: US (occurrence: None)
  Receive Date: 20160203
  Receipt Date: 20160203
  Transmission Date: 20160526
  Serious: No
  Sender: FDA-Public Use
  Company Number: None

PATIENT
  Age: 52 Year
  Sex: Male

DRUGS (3)
  1. STELARA [Suspect]
     Active Substance: USTEKINUMAB
     Indication: PSORIATIC ARTHROPATHY
     Dosage: 90 MG Q12WKS, SUBCUTANEOUS
     Route: 058
     Dates: start: 20150522
  2. FOLIC ACID. [Concomitant]
     Active Substance: FOLIC ACID
  3. CEPHALEXIN. [Concomitant]
     Active Substance: CEPHALEXIN

REACTIONS (4)
  - Skin fissures [None]
  - Visual impairment [None]
  - Skin disorder [None]
  - Contusion [None]

NARRATIVE: CASE EVENT DATE: 201601
